FAERS Safety Report 6801430-0 (Version None)
Quarter: 2010Q2

REPORT INFORMATION
  Report Type: 
  Country: None (occurrence: None)
  Receive Date: 20100629
  Receipt Date: 20100621
  Transmission Date: 20101027
  Serious: Yes (Hospitalization)
  Sender: FDA-Public Use
  Company Number: Z0000683A

PATIENT
  Age: 68 Year
  Sex: Male
  Weight: 113.3 kg

DRUGS (2)
  1. TOPOTECAN [Suspect]
     Dosage: 2.3MGM2 CYCLIC
     Route: 048
     Dates: start: 20090109
  2. BEVACIZUMAB [Suspect]
     Dosage: 15MGK CYCLIC
     Route: 042
     Dates: start: 20090109

REACTIONS (3)
  - ACUTE RESPIRATORY FAILURE [None]
  - BRONCHITIS [None]
  - PNEUMONIA [None]
